FAERS Safety Report 10028993 (Version 1)
Quarter: 2014Q1

REPORT INFORMATION
  Report Type: Spontaneous
  Country: DE (occurrence: DE)
  Receive Date: 20140321
  Receipt Date: 20140321
  Transmission Date: 20141002
  Serious: Yes (Hospitalization)
  Sender: FDA-Public Use
  Company Number: GXKR2014DE001269

PATIENT
  Sex: 0

DRUGS (2)
  1. ACETYLSALICYLIC ACID [Suspect]
     Indication: CORONARY ARTERY DISEASE
     Dosage: DAILY DOSE: 100 MG/D, LONG-TERM THERAPY
  2. BRILIQUE [Suspect]
     Indication: CORONARY ANGIOPLASTY
     Dosage: DAILY DOSE: 180 MG MILLGRAM(S) EVERY DAYS
     Dates: start: 20131123, end: 20140226

REACTIONS (1)
  - Periorbital haematoma [Unknown]
